FAERS Safety Report 8817584 (Version 2)
Quarter: 2012Q4

REPORT INFORMATION
  Report Type: 
  Country: US (occurrence: US)
  Receive Date: 20121001
  Receipt Date: 20121115
  Transmission Date: 20130627
  Serious: Yes (Hospitalization)
  Sender: FDA-Public Use
  Company Number: US-BAYER-2012-100243

PATIENT
  Age: 23 Year
  Sex: Female
  Weight: 99.77 kg

DRUGS (9)
  1. YAZ [Suspect]
     Indication: PREMENSTRUAL SYNDROME
     Dosage: UNK
     Dates: start: 20000101
  2. IMITREX [Concomitant]
     Dosage: UNK
  3. ANTIBIOTICS [Concomitant]
     Dosage: UNK
  4. NSAID^S [Concomitant]
     Dosage: UNK
  5. TOPAMAX [Concomitant]
     Dosage: UNK
     Dates: start: 1996
  6. MELATONIN [Concomitant]
     Indication: SLEEP DISORDER NOS
  7. ORAL CONTRACEPTIVE NOS [Concomitant]
     Indication: CYST
     Dosage: UNK
     Dates: start: 1997
  8. CELEXA [Concomitant]
     Indication: ANXIETY DEPRESSION
     Dosage: UNK
     Dates: start: 1996
  9. CELEXA [Concomitant]
     Indication: ANXIETY

REACTIONS (8)
  - Cholecystectomy [None]
  - Emotional distress [None]
  - Pain [None]
  - Injury [None]
  - General physical health deterioration [None]
  - Anxiety [None]
  - Anhedonia [None]
  - Pain [None]
